FAERS Safety Report 21699141 (Version 2)
Quarter: 2024Q2

REPORT INFORMATION
  Report Type: Spontaneous
  Country: FR (occurrence: FR)
  Receive Date: 20221208
  Receipt Date: 20240403
  Transmission Date: 20240716
  Serious: Yes (Hospitalization)
  Sender: FDA-Public Use
  Company Number: None

PATIENT
  Age: 82 Year
  Sex: Male
  Weight: 81 kg

DRUGS (3)
  1. CAPECITABINE [Suspect]
     Active Substance: CAPECITABINE
     Indication: Adenocarcinoma of colon
     Dates: end: 20211017
  2. TOZINAMERAN [Suspect]
     Active Substance: TOZINAMERAN
     Indication: COVID-19 immunisation
     Dosage: STRENGTH: 30 MICROGRAMS/DOSE?R1
     Dates: start: 20211011, end: 20211011
  3. TOZINAMERAN [Concomitant]
     Active Substance: TOZINAMERAN
     Indication: COVID-19 immunisation
     Dosage: STRENGTH: 30 MICROGRAMS/DOSE?D1+D2
     Dates: start: 20210304, end: 20210331

REACTIONS (3)
  - Deep vein thrombosis [Recovered/Resolved]
  - Cholecystitis [Recovered/Resolved]
  - Arthritis [Recovered/Resolved]
